FAERS Safety Report 7035013-7 (Version None)
Quarter: 2010Q4

REPORT INFORMATION
  Report Type: 
  Country: None (occurrence: None)
  Receive Date: 20101008
  Receipt Date: 20101001
  Transmission Date: 20110411
  Serious: Yes (Other)
  Sender: FDA-Public Use
  Company Number: US-SANOFI-AVENTIS-2010SA060332

PATIENT
  Age: 77 Year
  Sex: Female

DRUGS (3)
  1. LANTUS [Suspect]
     Indication: TYPE 2 DIABETES MELLITUS
     Dosage: DOSE:40 UNIT(S)
     Route: 058
     Dates: start: 20100901
  2. LANTUS [Suspect]
     Route: 058
     Dates: start: 20000101, end: 20100901
  3. SOLOSTAR [Suspect]
     Indication: TYPE 2 DIABETES MELLITUS
     Dates: start: 20100901

REACTIONS (2)
  - DIABETES MELLITUS INADEQUATE CONTROL [None]
  - HERPES ZOSTER [None]
